FAERS Safety Report 14477481 (Version 2)
Quarter: 2018Q3

REPORT INFORMATION
  Report Type: Report from Study
  Country: US (occurrence: US)
  Receive Date: 20180201
  Receipt Date: 20180723
  Transmission Date: 20181010
  Serious: No
  Sender: FDA-Public Use
  Company Number: US-EXELIXIS-CABO-17010284

PATIENT
  Sex: Male

DRUGS (22)
  1. DEXAMETHASONE. [Concomitant]
     Active Substance: DEXAMETHASONE
  2. DESOXIMETASONE. [Concomitant]
     Active Substance: DESOXIMETASONE
  3. CABOMETYX [Suspect]
     Active Substance: CABOZANTINIB S-MALATE
     Dosage: 40 MG, QOD
     Route: 048
     Dates: start: 20170621
  4. LEVOTHYROXINE. [Concomitant]
     Active Substance: LEVOTHYROXINE
  5. IMODIUM [Concomitant]
     Active Substance: LOPERAMIDE HYDROCHLORIDE
  6. CIPROFLOXACIN. [Concomitant]
     Active Substance: CIPROFLOXACIN
  7. HYDROCORTISONE. [Concomitant]
     Active Substance: HYDROCORTISONE
  8. CLOPIDOGREL [Concomitant]
     Active Substance: CLOPIDOGREL BISULFATE
  9. ZOVIRAX [Concomitant]
     Active Substance: ACYCLOVIR
  10. SYNTHROID [Concomitant]
     Active Substance: LEVOTHYROXINE SODIUM
  11. TOPICORT [Concomitant]
     Active Substance: DESOXIMETASONE
  12. ATORVASTATIN CALCIUM. [Concomitant]
     Active Substance: ATORVASTATIN CALCIUM
  13. CABOMETYX [Suspect]
     Active Substance: CABOZANTINIB S-MALATE
     Indication: RENAL CANCER
     Dosage: 40 MG, QD
     Route: 048
     Dates: start: 20170621
  14. ASPIRIN. [Concomitant]
     Active Substance: ASPIRIN
  15. ALLOPURINOL. [Concomitant]
     Active Substance: ALLOPURINOL
  16. ATENOLOL/CHLORTHALIDONE [Concomitant]
     Active Substance: ATENOLOL\CHLORTHALIDONE
  17. NYSTATIN. [Concomitant]
     Active Substance: NYSTATIN
  18. FIRST BXN MOUTHWASH [Concomitant]
     Active Substance: DIPHENHYDRAMINE HYDROCHLORIDE\LIDOCAINE HYDROCHLORIDE\NYSTATIN
  19. PLAVIX [Concomitant]
     Active Substance: CLOPIDOGREL BISULFATE
  20. TRIAMCINOLONE [Concomitant]
     Active Substance: TRIAMCINOLONE
  21. CLOBETASOL [Concomitant]
     Active Substance: CLOBETASOL
  22. ACETONE [Concomitant]
     Active Substance: ACETONE

REACTIONS (13)
  - Gingival disorder [Unknown]
  - Oropharyngeal pain [Unknown]
  - Constipation [Unknown]
  - Swollen tongue [Unknown]
  - Dry mouth [Unknown]
  - Diarrhoea [Unknown]
  - Palmar-plantar erythrodysaesthesia syndrome [Not Recovered/Not Resolved]
  - Mass [Unknown]
  - Hypersensitivity [Unknown]
  - Eating disorder [Unknown]
  - Stomatitis [Not Recovered/Not Resolved]
  - Dysphonia [Unknown]
  - Fatigue [Unknown]
